FAERS Safety Report 8469923-0 (Version None)
Quarter: 2012Q2

REPORT INFORMATION
  Report Type: 
  Country: None (occurrence: None)
  Receive Date: 20120627
  Receipt Date: 20120618
  Transmission Date: 20120825
  Serious: Yes (Other)
  Sender: FDA-Public Use
  Company Number: SK-BIOGENIDEC-2012BI020230

PATIENT
  Age: 32 Year
  Sex: Female

DRUGS (2)
  1. TYSABRI [Suspect]
     Indication: RELAPSING-REMITTING MULTIPLE SCLEROSIS
     Route: 042
     Dates: start: 20100722
  2. TRALGIT [Concomitant]
     Indication: BACK PAIN
     Route: 048
     Dates: start: 20110530

REACTIONS (1)
  - EPILEPSY [None]
